FAERS Safety Report 4641171-1 (Version None)
Quarter: 2005Q2

REPORT INFORMATION
  Report Type: 
  Country: None (occurrence: None)
  Receive Date: 20050421
  Receipt Date: 20050124
  Transmission Date: 20051028
  Serious: Yes (Other)
  Sender: FDA-Public Use
  Company Number: PHBS2005CA01321

PATIENT
  Age: 46 Year
  Sex: Female

DRUGS (2)
  1. ELIDEL [Suspect]
     Dosage: UNK, UNK
     Route: 061
     Dates: start: 20050101
  2. ALCOHOL [Suspect]

REACTIONS (6)
  - ALCOHOL INTERACTION [None]
  - APPLICATION SITE DERMATITIS [None]
  - APPLICATION SITE IRRITATION [None]
  - BURNING SENSATION [None]
  - FEELING HOT [None]
  - RASH SCARLATINIFORM [None]
